FAERS Safety Report 7637065-X (Version None)
Quarter: 2011Q3

REPORT INFORMATION
  Report Type: 
  Country: None (occurrence: None)
  Receive Date: 20110726
  Receipt Date: 20100630
  Transmission Date: 20111222
  Serious: No
  Sender: FDA-Public Use
  Company Number: US-MYLANLABS-2010S1011877

PATIENT
  Age: 77 Year
  Sex: Female

DRUGS (5)
  1. DILTIAZEM [Concomitant]
  2. PAROXETINE HCL [Suspect]
     Route: 048
     Dates: start: 20100627
  3. ASPIRIN [Concomitant]
  4. ENALAPRIL MALEATE [Concomitant]
  5. SIMVASTATIN [Concomitant]

REACTIONS (2)
  - PRURITUS [None]
  - RASH [None]
